FAERS Safety Report 8436330-6 (Version None)
Quarter: 2012Q2

REPORT INFORMATION
  Report Type: 
  Country: None (occurrence: None)
  Receive Date: 20120614
  Receipt Date: 20120601
  Transmission Date: 20120825
  Serious: Yes (Other)
  Sender: FDA-Public Use
  Company Number: CA-ELI_LILLY_AND_COMPANY-CA201204002239

PATIENT
  Age: 36 Year
  Sex: Male

DRUGS (2)
  1. CYMBALTA [Suspect]
     Indication: BACK PAIN
     Dosage: 120 MG, UNKNOWN
  2. LYRICA [Concomitant]
     Indication: BACK PAIN

REACTIONS (4)
  - JAUNDICE [None]
  - SEPSIS [None]
  - HEPATITIS [None]
  - CHOLELITHIASIS [None]
